FAERS Safety Report 10966105 (Version 1)
Quarter: 2015Q1

REPORT INFORMATION
  Report Type: Spontaneous
  Country: None (occurrence: None)
  Receive Date: 20150226
  Receipt Date: 20150226
  Transmission Date: 20150721
  Serious: No
  Sender: FDA-Public Use
  Company Number: TPA2010A04592

PATIENT
  Age: 53 Year
  Sex: Male
  Weight: 99.79 kg

DRUGS (3)
  1. METFORMIN [Concomitant]
     Active Substance: METFORMIN HYDROCHLORIDE
  2. ULORIC [Suspect]
     Active Substance: FEBUXOSTAT
     Indication: GOUT
  3. COLCHICINE. [Concomitant]
     Active Substance: COLCHICINE

REACTIONS (2)
  - Rash [None]
  - Gout [None]
